FAERS Safety Report 9003192 (Version 1)
Quarter: 2013Q1

REPORT INFORMATION
  Report Type: Spontaneous
  Country: BR (occurrence: BR)
  Receive Date: 20130108
  Receipt Date: 20130108
  Transmission Date: 20140127
  Serious: Yes (Other)
  Sender: FDA-Public Use
  Company Number: BR-JNJFOC-20130102533

PATIENT
  Age: 16 Year
  Sex: Female
  Weight: 60 kg

DRUGS (2)
  1. EVRA [Suspect]
     Indication: POLYCYSTIC OVARIES
     Route: 062
     Dates: start: 201208
  2. DEPAKOTE [Concomitant]
     Route: 065

REACTIONS (5)
  - Ovarian cystectomy [Recovered/Resolved]
  - Adnexal torsion [Recovered/Resolved]
  - Colitis [Not Recovered/Not Resolved]
  - Drug administered at inappropriate site [Recovered/Resolved]
  - Off label use [Unknown]
